FAERS Safety Report 6973832-3 (Version None)
Quarter: 2010Q3

REPORT INFORMATION
  Report Type: 
  Country: None (occurrence: None)
  Receive Date: 20100909
  Receipt Date: 20100831
  Transmission Date: 20110219
  Serious: Yes (Death)
  Sender: FDA-Public Use
  Company Number: A0880342A

PATIENT
  Age: 31 Year
  Sex: Female

DRUGS (1)
  1. AVANDIA [Suspect]
     Dosage: 4MG PER DAY
     Dates: end: 20081021

REACTIONS (4)
  - ASPIRATION [None]
  - CONVULSION [None]
  - DEATH [None]
  - MYOCARDIAL INFARCTION [None]
